FAERS Safety Report 7468138-2 (Version None)
Quarter: 2011Q2

REPORT INFORMATION
  Report Type: 
  Country: None (occurrence: None)
  Receive Date: 20110509
  Receipt Date: 20110429
  Transmission Date: 20111010
  Serious: Yes (Other)
  Sender: FDA-Public Use
  Company Number: US-ELI_LILLY_AND_COMPANY-US201105000275

PATIENT
  Sex: Male

DRUGS (4)
  1. INTEGRILIN [Concomitant]
     Indication: PERCUTANEOUS CORONARY INTERVENTION
  2. ANGIOMAX [Concomitant]
     Indication: PERCUTANEOUS CORONARY INTERVENTION
     Dosage: UNK
     Dates: start: 20110401
  3. EFFIENT [Suspect]
     Indication: PERCUTANEOUS CORONARY INTERVENTION
     Dosage: 60 MG, LOADING DOSE
     Dates: start: 20110401
  4. EFFIENT [Suspect]
     Dosage: UNK

REACTIONS (1)
  - THROMBOSIS IN DEVICE [None]
